FAERS Safety Report 18332550 (Version 1)
Quarter: 2020Q3

REPORT INFORMATION
  Report Type: Spontaneous
  Country: DE (occurrence: DE)
  Receive Date: 20200930
  Receipt Date: 20200930
  Transmission Date: 20201103
  Serious: Yes (Other)
  Sender: FDA-Public Use
  Company Number: DE-009507513-2009DEU010399

PATIENT

DRUGS (1)
  1. PEMBROLIZUMAB. [Suspect]
     Active Substance: PEMBROLIZUMAB
     Indication: LUNG SQUAMOUS CELL CARCINOMA RECURRENT
     Dosage: UNK
     Dates: start: 201707, end: 201805

REACTIONS (8)
  - Blood pressure decreased [Unknown]
  - Weight decreased [Unknown]
  - C-reactive protein increased [Unknown]
  - Dyspnoea [Unknown]
  - Cough [Unknown]
  - Pulmonary toxicity [Recovered/Resolved]
  - Computerised tomogram thorax abnormal [Unknown]
  - Decreased appetite [Unknown]

NARRATIVE: CASE EVENT DATE: 2017
